FAERS Safety Report 5680023-5 (Version None)
Quarter: 2008Q1

REPORT INFORMATION
  Report Type: 
  Country: None (occurrence: None)
  Receive Date: 20080325
  Receipt Date: 20080325
  Transmission Date: 20080703
  Serious: Yes (Hospitalization)
  Sender: FDA-Public Use
  Company Number: None

PATIENT
  Age: 39 Year
  Sex: Female
  Weight: 78.4723 kg

DRUGS (2)
  1. REMICADE [Suspect]
     Indication: CROHN'S DISEASE
     Dosage: 1 TIME DOSE IV
     Route: 042
     Dates: start: 20070802, end: 20070802
  2. REMICADE [Suspect]
     Indication: CROHN'S DISEASE
     Dosage: 1 TIME DOSE IV
     Route: 042
     Dates: start: 20070815, end: 20070815

REACTIONS (6)
  - ABASIA [None]
  - CONFUSIONAL STATE [None]
  - DIZZINESS [None]
  - HEMIPARESIS [None]
  - OPTIC NEURITIS [None]
  - VISUAL DISTURBANCE [None]
